FAERS Safety Report 6829957-6 (Version None)
Quarter: 2010Q3

REPORT INFORMATION
  Report Type: 
  Country: None (occurrence: None)
  Receive Date: 20100711
  Receipt Date: 20100408
  Transmission Date: 20110219
  Serious: No
  Sender: FDA-Public Use
  Company Number: US-ALLERGAN-1004616US

PATIENT
  Age: 62 Year
  Sex: Female

DRUGS (8)
  1. LATISSE [Suspect]
     Indication: HYPOTRICHOSIS
     Dosage: 1 GTT, UNK
     Dates: start: 20091211, end: 20100411
  2. PREMPRO [Concomitant]
     Indication: MENOPAUSE
     Dosage: UNK
  3. DOLOBID [Concomitant]
     Indication: OSTEOARTHRITIS
     Dosage: UNK
  4. ELMIRON [Concomitant]
     Indication: CYSTITIS INTERSTITIAL
     Dosage: UNK
  5. OXYBUTYNIN CHLORIDE [Concomitant]
     Indication: CYSTITIS INTERSTITIAL
     Dosage: UNK
  6. BOTOX [Concomitant]
     Dosage: UNK
     Dates: start: 20100201
  7. FACIAL SCULPTURE / DERMAL FILLER [Concomitant]
     Dosage: UNK
  8. COMBINATIONS OF VITAMINS [Concomitant]

REACTIONS (3)
  - DRUG INEFFECTIVE [None]
  - ERYTHEMA OF EYELID [None]
  - PRURITUS [None]
